FAERS Safety Report 9425949 (Version 1)
Quarter: 2013Q3

REPORT INFORMATION
  Report Type: Spontaneous
  Country: SE (occurrence: SE)
  Receive Date: 20130729
  Receipt Date: 20130729
  Transmission Date: 20140515
  Serious: Yes (Hospitalization, Other)
  Sender: FDA-Public Use
  Company Number: SE-JNJFOC-20130710517

PATIENT
  Age: 22 Year
  Sex: Male

DRUGS (1)
  1. IPREN [Suspect]
     Indication: PRODUCT USED FOR UNKNOWN INDICATION
     Route: 065
     Dates: start: 201305, end: 201305

REACTIONS (10)
  - Anal fistula [Recovering/Resolving]
  - Erythema [Recovering/Resolving]
  - Oropharyngeal pain [Recovering/Resolving]
  - Swelling face [Recovering/Resolving]
  - Fatigue [Recovering/Resolving]
  - Rash [Recovering/Resolving]
  - Pyrexia [Recovering/Resolving]
  - Local swelling [Recovering/Resolving]
  - Eosinophilia [Recovering/Resolving]
  - Hypersensitivity [Recovering/Resolving]
